FAERS Safety Report 23271938 (Version 2)
Quarter: 2024Q2

REPORT INFORMATION
  Report Type: Spontaneous
  Country: DE (occurrence: DE)
  Receive Date: 20231207
  Receipt Date: 20240618
  Transmission Date: 20240716
  Serious: Yes (Other)
  Sender: FDA-Public Use
  Company Number: DE-DCGMA-23202290

PATIENT
  Age: 25 Year
  Sex: Female

DRUGS (1)
  1. HUMAN RHO(D) IMMUNE GLOBULIN [Suspect]
     Active Substance: HUMAN RHO(D) IMMUNE GLOBULIN
     Route: 065
     Dates: start: 20200118

REACTIONS (4)
  - Nervous system disorder [Not Recovered/Not Resolved]
  - Sensory processing sensitivity [Not Recovered/Not Resolved]
  - Photophobia [Not Recovered/Not Resolved]
  - Parosmia [Not Recovered/Not Resolved]

NARRATIVE: CASE EVENT DATE: 20200801
